FAERS Safety Report 18410073 (Version 1)
Quarter: 2020Q4

REPORT INFORMATION
  Report Type: Spontaneous
  Country: US (occurrence: US)
  Receive Date: 20201021
  Receipt Date: 20201021
  Transmission Date: 20210114
  Serious: No
  Sender: FDA-Public Use
  Company Number: None

PATIENT
  Age: 48 Year
  Sex: Female
  Weight: 66.6 kg

DRUGS (2)
  1. GAMUNEX-C [Concomitant]
     Active Substance: HUMAN IMMUNOGLOBULIN G
     Dates: start: 20201014, end: 20201014
  2. GAMUNEX [Suspect]
     Active Substance: HUMAN IMMUNOGLOBULIN G
     Route: 041
     Dates: start: 20201014, end: 20201014

REACTIONS (2)
  - Nausea [None]
  - Vomiting [None]

NARRATIVE: CASE EVENT DATE: 20201015
